FAERS Safety Report 26117608 (Version 1)
Quarter: 2025Q4

REPORT INFORMATION
  Report Type: Spontaneous
  Country: US (occurrence: None)
  Receive Date: 20251203
  Receipt Date: 20251203
  Transmission Date: 20260117
  Serious: No
  Sender: FDA-CTU
  Company Number: None

PATIENT
  Age: 58 Year
  Sex: Female
  Weight: 58.5 kg

DRUGS (13)
  1. EZETIMIBE [Suspect]
     Active Substance: EZETIMIBE
     Indication: Blood cholesterol increased
     Dosage: OTHER QUANTITY : 1 TABLET(S);?FREQUENCY : DAILY;?
     Route: 048
  2. PRAVASTATIN [Concomitant]
     Active Substance: PRAVASTATIN
  3. PROGESTERONE [Concomitant]
     Active Substance: PROGESTERONE
  4. LOW-DOSE ASPIRIN [Concomitant]
     Active Substance: ASPIRIN
  5. AlgaeCal Collagen [Concomitant]
  6. Bone Renewal by Pure Synergy [Concomitant]
  7. COENZYME Q10 [Concomitant]
     Active Substance: DIETARY SUPPLEMENT\UBIDECARENONE
  8. MAGNESIUM GLYCINATE [Concomitant]
     Active Substance: MAGNESIUM GLYCINATE
  9. Mitochondria NRG [Concomitant]
  10. VITAMINS [Concomitant]
     Active Substance: VITAMINS
  11. Natto-Serrazime [Concomitant]
  12. PROBIOTICS NOS [Concomitant]
     Active Substance: PROBIOTICS NOS
  13. Vit D3 + K 12 [Concomitant]

REACTIONS (2)
  - Pain in extremity [None]
  - Pain [None]

NARRATIVE: CASE EVENT DATE: 20251022
